FAERS Safety Report 9148492 (Version 3)
Quarter: 2013Q2

REPORT INFORMATION
  Report Type: Spontaneous
  Country: FR (occurrence: FR)
  Receive Date: 20130308
  Receipt Date: 20130401
  Transmission Date: 20140414
  Serious: Yes (Hospitalization)
  Sender: FDA-Public Use
  Company Number: FR-CELGENEUS-056-21880-13024010

PATIENT
  Age: 66 Year
  Sex: Male

DRUGS (3)
  1. REVLIMID [Suspect]
     Indication: LYMPHOMA
     Dosage: 20 MILLIGRAM
     Route: 048
     Dates: start: 20130207, end: 20130208
  2. MABTHERA [Suspect]
     Indication: LYMPHOMA
     Route: 065
     Dates: start: 20130206, end: 20130213
  3. AUGMENTIN [Suspect]
     Indication: PHARYNGITIS
     Dosage: 3 GRAM
     Route: 048
     Dates: start: 20130216, end: 20130218

REACTIONS (1)
  - Vascular purpura [Unknown]
